FAERS Safety Report 15940898 (Version 6)
Quarter: 2019Q2

REPORT INFORMATION
  Report Type: Report from Study
  Country: US (occurrence: US)
  Receive Date: 20190208
  Receipt Date: 20190621
  Transmission Date: 20190711
  Serious: Yes (Other)
  Sender: FDA-Public Use
  Company Number: US-TAKEDA-2018MPI008481

PATIENT
  Age: 70 Year
  Sex: Male

DRUGS (1)
  1. BORTEZOMIB. [Suspect]
     Active Substance: BORTEZOMIB
     Indication: PLASMA CELL MYELOMA
     Dosage: UNK, 1/WEEK
     Route: 065

REACTIONS (15)
  - Graft versus host disease [Unknown]
  - Herpes zoster [Unknown]
  - Oral pain [Unknown]
  - Leukaemia [Recovering/Resolving]
  - Pneumonia [Recovering/Resolving]
  - Hip arthroplasty [Unknown]
  - Graft versus host disease in eye [Unknown]
  - Squamous cell carcinoma [Unknown]
  - Plasma cell myeloma recurrent [Recovering/Resolving]
  - Thyroid disorder [Unknown]
  - Platelet count decreased [Unknown]
  - Musculoskeletal discomfort [Unknown]
  - Basal cell carcinoma [Unknown]
  - Scoliosis [Unknown]
  - Body height decreased [Unknown]

NARRATIVE: CASE EVENT DATE: 20190319
